FAERS Safety Report 6649749-0 (Version None)
Quarter: 2010Q1

REPORT INFORMATION
  Report Type: 
  Country: None (occurrence: None)
  Receive Date: 20100324
  Receipt Date: 20100324
  Transmission Date: 20100710
  Serious: Yes (Other)
  Sender: FDA-Public Use
  Company Number: None

PATIENT
  Age: 63 Year
  Sex: Female
  Weight: 76.2043 kg

DRUGS (1)
  1. FOSAMAX [Suspect]
     Indication: OSTEOPENIA
     Dates: start: 20030115, end: 20100218

REACTIONS (5)
  - FEMUR FRACTURE [None]
  - GAIT DISTURBANCE [None]
  - IMPAIRED HEALING [None]
  - PATHOLOGICAL FRACTURE [None]
  - STRESS FRACTURE [None]
